FAERS Safety Report 24709929 (Version 2)
Quarter: 2024Q4

REPORT INFORMATION
  Report Type: Spontaneous
  Country: DK (occurrence: DK)
  Receive Date: 20241209
  Receipt Date: 20241231
  Transmission Date: 20250114
  Serious: Yes (Hospitalization, Other)
  Sender: WOCKHARDT LIMITED
  Company Number: DK-WOCKHARDT LIMITED-2024WLD000063

PATIENT
  Age: 37 Year
  Sex: Female

DRUGS (1)
  1. CEFTRIAXONE [Suspect]
     Active Substance: CEFTRIAXONE
     Indication: Sepsis
     Dosage: UNK
     Route: 042

REACTIONS (2)
  - Jarisch-Herxheimer reaction [Recovering/Resolving]
  - Product use in unapproved indication [Unknown]
